FAERS Safety Report 5064462-1 (Version None)
Quarter: 2006Q3

REPORT INFORMATION
  Report Type: 
  Country: None (occurrence: None)
  Receive Date: 20060728
  Receipt Date: 20060726
  Transmission Date: 20061208
  Serious: No
  Sender: FDA-Public Use
  Company Number: 2006PK01593

PATIENT
  Age: 15062 Day
  Sex: Female
  Weight: 43.1 kg

DRUGS (5)
  1. SEROQUEL [Suspect]
     Route: 048
     Dates: start: 20050606, end: 20060630
  2. CIATYL-Z [Suspect]
     Dates: start: 20060612, end: 20060630
  3. TAVOR [Concomitant]
  4. FOLIC ACID [Concomitant]
     Dates: start: 20050610, end: 20060630
  5. ERGENYL CHRONO [Concomitant]

REACTIONS (1)
  - LEUKOPENIA [None]
